FAERS Safety Report 8181843-8 (Version None)
Quarter: 2012Q1

REPORT INFORMATION
  Report Type: 
  Country: None (occurrence: None)
  Receive Date: 20120302
  Receipt Date: 20120227
  Transmission Date: 20120608
  Serious: Yes (Hospitalization, Other)
  Sender: FDA-Public Use
  Company Number: JP-BAYER-2011-123189

PATIENT
  Age: 78 Year
  Sex: Male

DRUGS (2)
  1. TICLOPIDINE HYDROCHLORIDE [Suspect]
     Indication: CEREBRAL INFARCTION
     Route: 048
  2. ASPIRIN [Suspect]
     Indication: CEREBRAL INFARCTION
     Route: 048

REACTIONS (4)
  - FAECES DISCOLOURED [None]
  - DECREASED APPETITE [None]
  - TUMOUR HAEMORRHAGE [None]
  - HAEMORRHAGIC ANAEMIA [None]
